FAERS Safety Report 18253607 (Version 2)
Quarter: 2020Q4

REPORT INFORMATION
  Report Type: Spontaneous
  Country: US (occurrence: US)
  Receive Date: 20200910
  Receipt Date: 20201021
  Transmission Date: 20210113
  Serious: Yes (Other)
  Sender: FDA-Public Use
  Company Number: US-BAYER-2020-184735

PATIENT
  Age: 79 Year
  Sex: Female
  Weight: 89.34 kg

DRUGS (12)
  1. CHROMIUM PICOLINATE [Concomitant]
     Active Substance: CHROMIUM PICOLINATE
  2. APRISO [Suspect]
     Active Substance: MESALAMINE
     Indication: COLITIS ULCERATIVE
     Dosage: UNK
     Dates: start: 20200206
  3. DILTIAZEM. [Concomitant]
     Active Substance: DILTIAZEM
     Indication: HYPERTENSION
     Dosage: 180 MG, QD
     Dates: start: 2000
  4. ACIDOPHILUS [Concomitant]
     Active Substance: LACTOBACILLUS ACIDOPHILUS
  5. VITAMIN D [VITAMIN D NOS] [Concomitant]
     Active Substance: VITAMIN D NOS
     Dosage: UNK
  6. VASCEPA [Suspect]
     Active Substance: ICOSAPENT ETHYL
     Indication: BLOOD TRIGLYCERIDES INCREASED
     Dosage: 2 G, BID
     Dates: start: 20200120, end: 20200316
  7. CIPRO [Suspect]
     Active Substance: CIPROFLOXACIN HYDROCHLORIDE
     Indication: URINARY TRACT INFECTION
     Dosage: UNK
     Dates: start: 2020
  8. ASACOL [Suspect]
     Active Substance: MESALAMINE
     Indication: COLITIS ULCERATIVE
     Dosage: UNK
     Dates: start: 20200205
  9. GLIPIZIDE. [Concomitant]
     Active Substance: GLIPIZIDE
     Indication: TYPE 2 DIABETES MELLITUS
     Dosage: 2.5 MG, UNK
  10. HALOBETASOL PROPIONATE. [Concomitant]
     Active Substance: HALOBETASOL PROPIONATE
     Dosage: UNK
     Route: 003
  11. LEVOXYL [Concomitant]
     Active Substance: LEVOTHYROXINE SODIUM
     Indication: THYROID DISORDER
     Dosage: UNK
  12. MAGNESIUM [Concomitant]
     Active Substance: MAGNESIUM
     Dosage: UNK

REACTIONS (13)
  - Rectal haemorrhage [Recovered/Resolved]
  - Fall [Recovered/Resolved]
  - Memory impairment [Recovered/Resolved]
  - Product dose omission in error [None]
  - Drug ineffective [Not Recovered/Not Resolved]
  - Abdominal discomfort [None]
  - Balance disorder [Not Recovered/Not Resolved]
  - Hypophagia [None]
  - Contusion [Recovered/Resolved]
  - Urinary tract infection [Not Recovered/Not Resolved]
  - Face injury [Recovered/Resolved]
  - Haematochezia [None]
  - Pain in extremity [Recovered/Resolved]

NARRATIVE: CASE EVENT DATE: 202001
